FAERS Safety Report 10645323 (Version 2)
Quarter: 2014Q4

REPORT INFORMATION
  Report Type: Spontaneous
  Country: JP (occurrence: JP)
  Receive Date: 20141211
  Receipt Date: 20141211
  Transmission Date: 20150529
  Serious: Yes (Other)
  Sender: FDA-Public Use
  Company Number: PHHY2014JP143817

PATIENT
  Age: 60 Year
  Sex: Female

DRUGS (4)
  1. CICLOSPORIN [Suspect]
     Active Substance: CYCLOSPORINE
     Indication: OFF LABEL USE
  2. PREDNISOLONE. [Suspect]
     Active Substance: PREDNISOLONE
     Indication: OFF LABEL USE
  3. PREDNISOLONE. [Suspect]
     Active Substance: PREDNISOLONE
     Indication: INTERSTITIAL LUNG DISEASE
     Route: 065
  4. CICLOSPORIN [Suspect]
     Active Substance: CYCLOSPORINE
     Indication: INTERSTITIAL LUNG DISEASE
     Route: 048

REACTIONS (4)
  - Sputum discoloured [Unknown]
  - Pulmonary mycosis [Unknown]
  - Bronchiectasis [Unknown]
  - Sputum purulent [Unknown]
